FAERS Safety Report 7657404-3 (Version None)
Quarter: 2011Q3

REPORT INFORMATION
  Report Type: 
  Country: None (occurrence: None)
  Receive Date: 20110804
  Receipt Date: 20110726
  Transmission Date: 20111222
  Serious: Yes (Hospitalization)
  Sender: FDA-Public Use
  Company Number: BR-ASTRAZENECA-2011SE09023

PATIENT
  Age: 58 Year
  Sex: Female
  Weight: 92 kg

DRUGS (15)
  1. MODURETIC 5-50 [Concomitant]
     Indication: HYPERTENSION
     Route: 048
     Dates: start: 20050101
  2. LONIUM [Concomitant]
     Indication: IRRITABLE BOWEL SYNDROME
     Dates: start: 20100801
  3. NEXIUM [Suspect]
     Route: 048
     Dates: start: 20110101
  4. NEXIUM [Suspect]
     Dosage: DOSE FLUCTUATED BETWEEN 40 AND 20MG
     Route: 048
     Dates: start: 20110101, end: 20110501
  5. PONDERA [Concomitant]
     Indication: DEPRESSION
     Dates: start: 20110101
  6. BROMAZEPAN [Concomitant]
     Indication: ANXIETY
     Dates: start: 20110101
  7. LEVOTHYROXINE SODIUM [Concomitant]
     Indication: HYPOTHYROIDISM
     Route: 048
     Dates: start: 20020101
  8. NEXIUM [Suspect]
     Route: 048
     Dates: start: 20110501
  9. NEXIUM [Suspect]
     Indication: GASTRITIS
     Route: 048
     Dates: end: 20110101
  10. LOSARTAN POTASSIUM [Concomitant]
     Indication: HYPERTENSION
     Route: 048
     Dates: start: 20050101
  11. MANIPULATED FORMULA CORTICOID, OPIOID [Concomitant]
     Indication: FIBROMYALGIA
     Dosage: BID
     Route: 048
  12. NEXIUM [Suspect]
     Route: 048
     Dates: start: 20110101
  13. NEXIUM [Suspect]
     Dosage: DOSE FLUCTUATED BETWEEN 40 AND 20MG
     Route: 048
     Dates: start: 20110101, end: 20110501
  14. NEXIUM [Suspect]
     Route: 048
     Dates: start: 20110501
  15. NEXIUM [Suspect]
     Indication: HIATUS HERNIA
     Route: 048
     Dates: end: 20110101

REACTIONS (7)
  - UMBILICAL HERNIA [None]
  - EYE DISORDER [None]
  - ABDOMINAL PAIN UPPER [None]
  - IRRITABLE BOWEL SYNDROME [None]
  - DYSPEPSIA [None]
  - GASTROOESOPHAGEAL REFLUX DISEASE [None]
  - BLOOD PRESSURE FLUCTUATION [None]
